FAERS Safety Report 24701221 (Version 2)
Quarter: 2025Q4

REPORT INFORMATION
  Report Type: Report from Study
  Country: CA (occurrence: None)
  Receive Date: 20241205
  Receipt Date: 20251205
  Transmission Date: 20260119
  Serious: No
  Sender: UCB
  Company Number: CA-UCBSA-2024045466

PATIENT

DRUGS (2)
  1. CERTOLIZUMAB PEGOL [Suspect]
     Active Substance: CERTOLIZUMAB PEGOL
     Indication: Rheumatoid arthritis
     Dosage: 400 MILLIGRAM, EV 2 WEEKS(QOW)X3
  2. CERTOLIZUMAB PEGOL [Suspect]
     Active Substance: CERTOLIZUMAB PEGOL
     Dosage: 200 MILLIGRAM, EV 2 WEEKS(QOW)

REACTIONS (3)
  - Health assessment questionnaire score increased [Recovering/Resolving]
  - Arthralgia [Unknown]
  - Pain in extremity [Unknown]
